FAERS Safety Report 10145618 (Version 1)
Quarter: 2014Q2

REPORT INFORMATION
  Report Type: Spontaneous
  Country: US (occurrence: US)
  Receive Date: 20140501
  Receipt Date: 20140501
  Transmission Date: 20141212
  Serious: No
  Sender: FDA-Public Use
  Company Number: US-009507513-1404USA006686

PATIENT
  Age: 2 Year
  Sex: Female

DRUGS (3)
  1. CLARITIN CHEWABLE TABLETS [Suspect]
     Indication: HYPERSENSITIVITY
     Dosage: UNK, UNKNOWN
     Route: 048
  2. CLARITIN CHEWABLE TABLETS [Suspect]
     Indication: UPPER-AIRWAY COUGH SYNDROME
  3. CLARITIN CHEWABLE TABLETS [Suspect]
     Indication: COUGH

REACTIONS (4)
  - Drug effect delayed [Unknown]
  - Off label use [Unknown]
  - Therapeutic response changed [Unknown]
  - Drug effect incomplete [Unknown]
